FAERS Safety Report 4721725-4 (Version None)
Quarter: 2005Q3

REPORT INFORMATION
  Report Type: 
  Country: None (occurrence: None)
  Receive Date: 20050721
  Receipt Date: 20050317
  Transmission Date: 20060218
  Serious: No
  Sender: FDA-Public Use
  Company Number: US-BRISTOL-MYERS SQUIBB COMPANY-12901401

PATIENT
  Sex: Female
  Weight: 63 kg

DRUGS (3)
  1. COUMADIN [Suspect]
     Indication: TRANSIENT ISCHAEMIC ATTACK
     Dosage: 2.5 MG DAILY ON MONDAY, WEDNESDAY, THURSDAY, FRIDAY AND SATURDAY.
  2. TYLENOL [Concomitant]
     Indication: BACK PAIN
  3. SPIRONOLACTONE [Concomitant]

REACTIONS (2)
  - BACK PAIN [None]
  - FATIGUE [None]
